FAERS Safety Report 8919080 (Version 2)
Quarter: 2013Q4

REPORT INFORMATION
  Report Type: Spontaneous
  Country: FR (occurrence: FR)
  Receive Date: 20121121
  Receipt Date: 20131004
  Transmission Date: 20140711
  Serious: Yes (Hospitalization)
  Sender: FDA-Public Use
  Company Number: FR-ASTRAZENECA-2012SE87054

PATIENT
  Age: 31135 Day
  Sex: Male

DRUGS (11)
  1. ATACAND [Suspect]
     Route: 048
     Dates: end: 20120828
  2. LASILIX [Interacting]
     Route: 048
     Dates: start: 201207
  3. LASILIX [Interacting]
     Route: 042
  4. ALLOPURINOL [Concomitant]
     Route: 048
     Dates: end: 20120829
  5. PLAVIX [Concomitant]
     Route: 048
  6. TAHOR [Concomitant]
     Route: 048
  7. PARIET [Concomitant]
     Route: 048
  8. CARDENSIEL [Concomitant]
     Route: 048
  9. HEMIGOXINE NATIVELLE [Concomitant]
     Route: 048
  10. LERCAN [Concomitant]
     Route: 048
  11. TRINITRINE [Concomitant]
     Route: 062

REACTIONS (3)
  - Drug interaction [Unknown]
  - Renal impairment [Unknown]
  - Hyperkalaemia [Unknown]
